FAERS Safety Report 8539780-2 (Version None)
Quarter: 2012Q3

REPORT INFORMATION
  Report Type: 
  Country: None (occurrence: None)
  Receive Date: 20120726
  Receipt Date: 20120123
  Transmission Date: 20120928
  Serious: No
  Sender: FDA-Public Use
  Company Number: US-MYLANLABS-2011S1026508

PATIENT
  Age: 50 Year
  Sex: Male

DRUGS (4)
  1. CLONIDINE [Suspect]
     Indication: HYPERTENSION
     Dates: start: 19860101
  2. EXFORGE HCT [Suspect]
     Indication: BLOOD PRESSURE INCREASED
  3. CLONIDINE [Suspect]
     Indication: BLOOD PRESSURE INCREASED
     Dates: start: 19860101
  4. EXFORGE HCT [Suspect]
     Indication: HYPERTENSION

REACTIONS (1)
  - UPPER LIMB FRACTURE [None]
